FAERS Safety Report 9959988 (Version 2)
Quarter: 2014Q1

REPORT INFORMATION
  Report Type: Report from Study
  Country: US (occurrence: US)
  Receive Date: 20140305
  Receipt Date: 20140305
  Transmission Date: 20141002
  Serious: No
  Sender: FDA-Public Use
  Company Number: US-ABBVIE-12P-163-0949242-00

PATIENT
  Age: 57 Year
  Sex: Female

DRUGS (9)
  1. HUMIRA 40 MG/0.8 ML PEN [Suspect]
     Indication: COLITIS ULCERATIVE
     Dosage: LOADING DOSE
     Route: 058
     Dates: start: 20120525, end: 20120525
  2. HUMIRA 40 MG/0.8 ML PEN [Suspect]
     Route: 058
  3. HUMIRA 40 MG/0.8 ML PEN [Suspect]
     Dosage: GIVEN FOUR WEEKS AFTER 160 MG
     Route: 058
     Dates: start: 20120815, end: 20120815
  4. HUMIRA 40 MG/0.8 ML PEN [Suspect]
     Route: 058
     Dates: start: 201208, end: 201306
  5. BALSALAZIDE [Concomitant]
     Indication: PRODUCT USED FOR UNKNOWN INDICATION
  6. PREDNISONE [Concomitant]
     Indication: PRODUCT USED FOR UNKNOWN INDICATION
     Dosage: TAPERING DOSE
  7. PREDNISONE [Concomitant]
     Dosage: TAPERING DOSE
  8. PREDNISONE [Concomitant]
     Dosage: TAPERING DOSE
  9. LEVOTHYROXINE [Concomitant]
     Indication: PRODUCT USED FOR UNKNOWN INDICATION

REACTIONS (4)
  - Off label use [Not Recovered/Not Resolved]
  - Herpes zoster [Recovered/Resolved]
  - Injection site haemorrhage [Recovered/Resolved]
  - Drug ineffective [Not Recovered/Not Resolved]
